FAERS Safety Report 5814702-3 (Version None)
Quarter: 2008Q3

REPORT INFORMATION
  Report Type: 
  Country: None (occurrence: None)
  Receive Date: 20080718
  Receipt Date: 20080404
  Transmission Date: 20090109
  Serious: No
  Sender: FDA-Public Use
  Company Number: US-KINGPHARMUSA00001-K200800415

PATIENT

DRUGS (4)
  1. LEVOXYL [Suspect]
     Indication: HYPOTHYROIDISM
     Dosage: 137 MCG, QD
     Route: 048
     Dates: start: 20060101, end: 20080201
  2. LEVOXYL [Suspect]
     Dosage: 112 MCG, QD
     Route: 048
     Dates: start: 20080201, end: 20080402
  3. LEVOXYL [Suspect]
     Dosage: 137 MCG, QD
     Route: 048
     Dates: start: 20080403, end: 20080403
  4. LEVOXYL [Suspect]
     Dosage: 112 MCG, QD
     Route: 048
     Dates: start: 20080404

REACTIONS (1)
  - NONINFECTIVE BRONCHITIS [None]
